FAERS Safety Report 8838354 (Version 2)
Quarter: 2012Q4

REPORT INFORMATION
  Report Type: 
  Country: NL (occurrence: US)
  Receive Date: 20121012
  Receipt Date: 20121106
  Transmission Date: 20130627
  Serious: Yes (Death, Hospitalization)
  Sender: FDA-Public Use
  Company Number: US-BRISTOL-MYERS SQUIBB COMPANY-17013558

PATIENT
  Age: 86 Year
  Sex: Female

DRUGS (11)
  1. COUMADIN [Suspect]
     Indication: MITRAL VALVE REPLACEMENT
     Dosage: unk-7Jul12 2.5mg(Sun,Mon,Wed,Fri)
unk-unk 5mg (Tues,Thu,sat)
     Route: 048
  2. OXYBUTIN [Suspect]
     Dosage: 5mg transdermal
     Route: 048
     Dates: start: 20120706
  3. RANITIDINE [Concomitant]
  4. CALCIUM + VITAMIN D [Concomitant]
     Dosage: Calcium 600plus D3(calcium phosphate,calcium sodium lactate,ergocalciferol)
  5. HYDROCHLOROTHIAZIDE [Concomitant]
     Dosage: tab
  6. SENNA [Concomitant]
  7. LISINOPRIL [Concomitant]
  8. LUTEIN [Concomitant]
  9. PREVACID [Concomitant]
     Dosage: tab
  10. PROPANOLOL HYDROCHLORIDE [Concomitant]
  11. MECLOZINE [Concomitant]
     Dosage: tab

REACTIONS (12)
  - Cardio-respiratory arrest [Fatal]
  - Colitis [Unknown]
  - Renal failure [Unknown]
  - Dehydration [Unknown]
  - International normalised ratio increased [Unknown]
  - Abdominal pain [Recovering/Resolving]
  - Urinary retention [Unknown]
  - Headache [Unknown]
  - Confusional state [Unknown]
  - Disorientation [Unknown]
  - Mood altered [Unknown]
  - Balance disorder [Unknown]
